FAERS Safety Report 9825021 (Version 1)
Quarter: 2014Q1

REPORT INFORMATION
  Report Type: Spontaneous
  Country: US (occurrence: None)
  Receive Date: 20140115
  Receipt Date: 20140115
  Transmission Date: 20141002
  Serious: Yes (Hospitalization)
  Sender: FDA-Public Use
  Company Number: None

PATIENT
  Age: 47 Year
  Sex: Female
  Weight: 50.2 kg

DRUGS (12)
  1. CETUXIMAB [Suspect]
     Indication: SQUAMOUS CELL CARCINOMA
     Dosage: 250 MG/M2  WEEKLY
     Dates: start: 20130701, end: 20131230
  2. CETUXIMAB [Suspect]
     Indication: METASTASIS
     Dosage: 250 MG/M2  WEEKLY
     Dates: start: 20130701, end: 20131230
  3. PAZOPANIB [Suspect]
     Indication: SQUAMOUS CELL CARCINOMA
     Dates: start: 20130701, end: 20131230
  4. PAZOPANIB [Suspect]
     Indication: METASTASIS
     Dates: start: 20130701, end: 20131230
  5. CLINDAMYCIN PHOSPHATE [Concomitant]
  6. HYDROCODONE-ACETAMINOPHEN [Concomitant]
  7. HYDROCORTISONE [Concomitant]
  8. LIDOCAINE-PRILOCAINE [Concomitant]
  9. LORAZEPAM [Concomitant]
  10. METRONIDAZOLE [Concomitant]
  11. PHOS-NAK [Concomitant]
  12. PROCHLORPERAZINE MALEATE [Concomitant]

REACTIONS (1)
  - Anxiety [None]
